FAERS Safety Report 19739261 (Version 1)
Quarter: 2021Q3

REPORT INFORMATION
  Report Type: Spontaneous
  Country: DE (occurrence: DE)
  Receive Date: 20210823
  Receipt Date: 20210823
  Transmission Date: 20211014
  Serious: Yes (Life-Threatening, Hospitalization, Other)
  Sender: FDA-Public Use
  Company Number: DE-MYLANLABS-2021M1054572

PATIENT
  Age: 65 Year
  Sex: Male

DRUGS (5)
  1. CYANOCOBALAMIN. [Concomitant]
     Active Substance: CYANOCOBALAMIN
     Dosage: 100 ?G/ALLE 3 MONATE, 1?0?0?0
     Route: 030
  2. CARBOPLATIN. [Suspect]
     Active Substance: CARBOPLATIN
     Indication: PRODUCT USED FOR UNKNOWN INDICATION
     Dosage: LETZTE GABE AM 04122020
     Route: 042
  3. ETOPOSIDE. [Suspect]
     Active Substance: ETOPOSIDE
     Indication: PRODUCT USED FOR UNKNOWN INDICATION
     Dosage: LETZTE GABE AM 06122020
     Route: 042
  4. ZOFRAN [Concomitant]
     Active Substance: ONDANSETRON HYDROCHLORIDE
     Dosage: 8 MG, BEDARF MAX 2X TGL
  5. MCP [Concomitant]
     Active Substance: METOCLOPRAMIDE HYDROCHLORIDE
     Dosage: 100 MG, BEDARF MAX 3 X TGL

REACTIONS (7)
  - Pulmonary sepsis [Unknown]
  - Dizziness [Unknown]
  - Syncope [Unknown]
  - Chills [Unknown]
  - Nausea [Unknown]
  - Asthenia [Unknown]
  - Neutropenia [Unknown]
